FAERS Safety Report 10034165 (Version 1)
Quarter: 2014Q1

REPORT INFORMATION
  Report Type: Spontaneous
  Country: US (occurrence: None)
  Receive Date: 20140324
  Receipt Date: 20140324
  Transmission Date: 20141002
  Serious: Yes (Life-Threatening)
  Sender: FDA-Public Use
  Company Number: None

PATIENT
  Age: 58 Year
  Sex: Male
  Weight: 63.5 kg

DRUGS (1)
  1. OFLOXACIN [Suspect]
     Indication: CONJUNCTIVITIS
     Dosage: 1 DROP BOTH EYES?FOUR TIME DAILY?INTO THE EYE
     Dates: start: 20140320, end: 20140321

REACTIONS (1)
  - Hypersensitivity [None]
